FAERS Safety Report 25675192 (Version 1)
Quarter: 2025Q3

REPORT INFORMATION
  Report Type: Other
  Country: US (occurrence: US)
  Receive Date: 20250813
  Receipt Date: 20250813
  Transmission Date: 20251021
  Serious: Yes (Other)
  Sender: APPCO PHARMA LLC
  Company Number: US-Appco Pharma LLC-2182394

PATIENT
  Age: 60 Year
  Sex: Male

DRUGS (1)
  1. TIZANIDINE [Suspect]
     Active Substance: TIZANIDINE
     Indication: Product used for unknown indication

REACTIONS (1)
  - Apnoeic attack [Recovered/Resolved]
